FAERS Safety Report 5344239-X (Version None)
Quarter: 2007Q2

REPORT INFORMATION
  Report Type: 
  Country: None (occurrence: None)
  Receive Date: 20070416
  Receipt Date: 20070104
  Transmission Date: 20071010
  Serious: No
  Sender: FDA-Public Use
  Company Number: 2007SP000047

PATIENT
  Age: 75 Year
  Sex: Female
  Weight: 50.3493 kg

DRUGS (6)
  1. LUNESTA [Suspect]
     Indication: INSOMNIA
     Dosage: 1 MG ; 2 MG : PRN; ORAL
     Route: 048
     Dates: start: 20061101, end: 20061201
  2. LUNESTA [Suspect]
     Indication: INSOMNIA
     Dosage: 1 MG ; 2 MG : PRN; ORAL
     Route: 048
     Dates: start: 20061201
  3. XANAX [Concomitant]
  4. THEOPHYLLINE [Concomitant]
  5. ALBUTEROL [Concomitant]
  6. OXYGEN [Concomitant]

REACTIONS (2)
  - INSOMNIA [None]
  - LUNG INFECTION [None]
